FAERS Safety Report 9658122 (Version 1)
Quarter: 2013Q4

REPORT INFORMATION
  Report Type: Not Available
  Country: US (occurrence: US)
  Receive Date: 20131030
  Receipt Date: 20131030
  Transmission Date: 20140711
  Serious: No
  Sender: FDA-Public Use
  Company Number: US-PURDUE-USA-2011-0079796

PATIENT
  Sex: 0

DRUGS (1)
  1. OXYCONTIN (NDA 22-272) [Suspect]
     Indication: PAIN
     Dosage: 80 MG, UNK

REACTIONS (10)
  - Influenza like illness [Unknown]
  - Headache [Unknown]
  - Abdominal pain upper [Unknown]
  - Bladder pain [Unknown]
  - Chest pain [Unknown]
  - Bladder spasm [Unknown]
  - Muscle spasms [Unknown]
  - Feeling abnormal [Unknown]
  - Drug ineffective [Unknown]
  - Pain [Unknown]
